FAERS Safety Report 8712953 (Version 2)
Quarter: 2012Q4

REPORT INFORMATION
  Report Type: 
  Country: FR (occurrence: FR)
  Receive Date: 20120808
  Receipt Date: 20120917
  Transmission Date: 20130627
  Serious: Yes (Hospitalization)
  Sender: FDA-Public Use
  Company Number: FR-SANOFI-AVENTIS-2012SA055544

PATIENT
  Sex: Female

DRUGS (18)
  1. TIAPRIDE [Suspect]
     Indication: VASCULAR DEMENTIA
     Dosage: 5 drops in the morning and 10 drops in the evening
     Route: 048
     Dates: start: 20120110
  2. TIAPRIDE [Suspect]
     Indication: VASCULAR DEMENTIA
     Dosage: 3 drops in the morning and 5 drops in the evening
     Route: 048
  3. LASILIX [Suspect]
     Indication: DRUG USE FOR UNKNOWN INDICATION
     Route: 048
  4. TRIATEC [Suspect]
     Indication: DRUG USE FOR UNKNOWN INDICATION
     Route: 048
  5. CARDENSIEL [Suspect]
     Indication: DRUG USE FOR UNKNOWN INDICATION
     Route: 048
  6. DEROXAT [Suspect]
     Indication: DRUG USE FOR UNKNOWN INDICATION
     Route: 048
  7. TERCIAN [Concomitant]
     Route: 048
     Dates: start: 20120105, end: 20120110
  8. CORDARONE [Concomitant]
     Route: 048
  9. COUMADINE [Concomitant]
     Route: 048
  10. TAHOR [Concomitant]
     Route: 048
  11. EFFERALGAN [Concomitant]
     Dosage: Up to 3 g daily
     Route: 048
  12. BRICANYL [Concomitant]
     Route: 055
     Dates: start: 20120327
  13. ATROVENT [Concomitant]
     Route: 055
     Dates: start: 20120327
  14. INEXIUM [Concomitant]
     Route: 048
     Dates: start: 20120327
  15. CALCIDOSE VITAMINE D [Concomitant]
     Route: 048
  16. KALEORID [Concomitant]
     Route: 048
  17. LANTUS [Concomitant]
     Route: 058
  18. PARIET [Concomitant]
     Route: 048
     Dates: end: 20120323

REACTIONS (7)
  - Fall [Recovering/Resolving]
  - Disorientation [None]
  - Face injury [None]
  - Haematoma [None]
  - Cardiac failure [None]
  - Balance disorder [None]
  - Ischaemic cardiomyopathy [None]
